FAERS Safety Report 6063640-2 (Version None)
Quarter: 2009Q1

REPORT INFORMATION
  Report Type: 
  Country: None (occurrence: None)
  Receive Date: 20090203
  Receipt Date: 20090122
  Transmission Date: 20090719
  Serious: Yes (Hospitalization)
  Sender: FDA-Public Use
  Company Number: US-WATSON-2009-00378

PATIENT
  Sex: Female
  Weight: 64.5 kg

DRUGS (7)
  1. INFED [Suspect]
     Indication: IRON DEFICIENCY ANAEMIA
     Dosage: 500 MG, OVER 4 HOURS AND 11 MINUTES
     Route: 042
     Dates: start: 20090113, end: 20090113
  2. INFED [Suspect]
     Dosage: 500 MG, OVER 4 HOURS AND 11 MINUTES
     Route: 042
     Dates: start: 20090106, end: 20090106
  3. INFED [Suspect]
     Dosage: 5 ML, OVER 15 MINUTES (TEST DOSE)
     Route: 042
     Dates: start: 20090105, end: 20090105
  4. FLUOXETINE HCL [Concomitant]
     Indication: DEPRESSION
     Dosage: 20 MG, DAILY
     Route: 048
  5. BENADRYL [Concomitant]
     Indication: PROPHYLAXIS
     Dosage: 50 MG, UNKNOWN
     Route: 042
  6. DECADRON [Concomitant]
     Indication: PROPHYLAXIS
     Dosage: 10 MG, UNKNOWN
     Route: 042
  7. ZANTAC [Concomitant]
     Indication: PROPHYLAXIS
     Dosage: 50 MG, UNKNOWN
     Route: 042

REACTIONS (3)
  - ADNEXA UTERI CYST [None]
  - CERVIX HAEMORRHAGE UTERINE [None]
  - FLANK PAIN [None]
